FAERS Safety Report 20494512 (Version 1)
Quarter: 2022Q1

REPORT INFORMATION
  Report Type: Spontaneous
  Country: US (occurrence: US)
  Receive Date: 20220221
  Receipt Date: 20220221
  Transmission Date: 20220423
  Serious: No
  Sender: FDA-Public Use
  Company Number: US-009507513-2201USA008625

PATIENT
  Age: 36 Year
  Sex: Male
  Weight: 196.9 kg

DRUGS (4)
  1. PREVYMIS [Suspect]
     Active Substance: LETERMOVIR
     Indication: Cytomegalovirus infection
     Dosage: 480 MILLIGRAM, ONCE DAILY
     Route: 042
  2. PREVYMIS [Suspect]
     Active Substance: LETERMOVIR
     Dosage: 480 MILLIGRAM, ONCE DAILY
     Route: 042
  3. LEFLUNOMIDE [Concomitant]
     Active Substance: LEFLUNOMIDE
     Indication: Cytomegalovirus infection
     Dosage: 100 MILLIGRAM, ONCE DAILY
  4. MARIBAVIR [Concomitant]
     Active Substance: MARIBAVIR
     Dosage: 400 MILLIGRAM, EVERY 12 H
     Route: 048

REACTIONS (1)
  - Off label use [Unknown]
